FAERS Safety Report 7441137-2 (Version None)
Quarter: 2011Q2

REPORT INFORMATION
  Report Type: 
  Country: None (occurrence: None)
  Receive Date: 20110428
  Receipt Date: 20110419
  Transmission Date: 20111010
  Serious: Yes (Hospitalization)
  Sender: FDA-Public Use
  Company Number: US-BIOGENIDEC-2010BI030374

PATIENT
  Age: 34 Year
  Sex: Male

DRUGS (2)
  1. TYSABRI [Suspect]
     Indication: MULTIPLE SCLEROSIS
     Route: 042
     Dates: start: 20070122, end: 20080612
  2. TYSABRI [Suspect]
     Route: 042
     Dates: start: 20090127

REACTIONS (7)
  - DYSPHAGIA [None]
  - CHOKING [None]
  - GENERAL SYMPTOM [None]
  - DEHYDRATION [None]
  - LUNG INFECTION [None]
  - LUNG DISORDER [None]
  - APHAGIA [None]
